FAERS Safety Report 7323546-5 (Version None)
Quarter: 2011Q1

REPORT INFORMATION
  Report Type: 
  Country: None (occurrence: None)
  Receive Date: 20110301
  Receipt Date: 20110215
  Transmission Date: 20110831
  Serious: Yes (Hospitalization)
  Sender: FDA-Public Use
  Company Number: US-ROCHE-760395

PATIENT
  Sex: Female
  Weight: 75.4 kg

DRUGS (8)
  1. VANCOMYCIN [Concomitant]
  2. MAGNESIUM SULFATE [Concomitant]
  3. HYDROCODONE [Concomitant]
     Dates: start: 20110210
  4. AZITHROMYCIN [Concomitant]
     Route: 048
     Dates: start: 20110204
  5. CEFTRIAXONE [Suspect]
     Route: 042
     Dates: start: 20110209
  6. OSELTAMIVIR [Suspect]
     Indication: INFLUENZA
     Dosage: PERMANENTLY DISCONTINUED. DOSE BLINDED.
     Route: 042
     Dates: start: 20110211, end: 20110213
  7. CEFEPIME [Suspect]
     Route: 065
  8. DIPHENHYDRAMINE [Concomitant]

REACTIONS (2)
  - PYREXIA [None]
  - NEUTROPENIA [None]
